FAERS Safety Report 20384885 (Version 1)
Quarter: 2022Q1

REPORT INFORMATION
  Report Type: Other
  Country: US (occurrence: None)
  Receive Date: 20220127
  Receipt Date: 20220127
  Transmission Date: 20220423
  Serious: No
  Sender: FDA-Public Use
  Company Number: US-ROCHE-3009521

PATIENT
  Age: 68 Year
  Sex: Female
  Weight: 83.990 kg

DRUGS (5)
  1. OCREVUS [Suspect]
     Active Substance: OCRELIZUMAB
     Indication: Relapsing-remitting multiple sclerosis
     Dosage: 300MG ON DAY 1 AND DAY 15
     Route: 042
     Dates: start: 202003
  2. MODAFINIL [Concomitant]
     Active Substance: MODAFINIL
  3. GLIPIZIDE ER [Concomitant]
     Active Substance: GLIPIZIDE
  4. LISINOPRIL [Concomitant]
     Active Substance: LISINOPRIL
  5. PAXIL [Concomitant]
     Active Substance: PAROXETINE HYDROCHLORIDE

REACTIONS (1)
  - COVID-19 [Not Recovered/Not Resolved]

NARRATIVE: CASE EVENT DATE: 20220118
